FAERS Safety Report 4279294-1 (Version None)
Quarter: 2004Q1

REPORT INFORMATION
  Report Type: 
  Country: None (occurrence: None)
  Receive Date: 20040127
  Receipt Date: 20030909
  Transmission Date: 20041129
  Serious: Yes (Other)
  Sender: FDA-Public Use
  Company Number: PHEH2003US08214

PATIENT
  Age: 72 Year
  Sex: Female

DRUGS (4)
  1. WARFARIN SODIUM [Concomitant]
     Dosage: 2.5MG TO 7MG/ UNK
  2. THALIDOMIDE [Concomitant]
     Dosage: 100 MG, UNK
     Dates: start: 20020926, end: 20030425
  3. AREDIA [Suspect]
     Indication: MULTIPLE MYELOMA
     Dosage: 90 MG, QMO
     Route: 042
     Dates: start: 19960804, end: 20011203
  4. ZOMETA [Suspect]
     Indication: MULTIPLE MYELOMA
     Dosage: 4 MG, QMO
     Dates: start: 20020107, end: 20030318

REACTIONS (5)
  - BONE DEBRIDEMENT [None]
  - BONE FORMATION INCREASED [None]
  - BONE PAIN [None]
  - OSTEONECROSIS [None]
  - TOOTH EXTRACTION [None]
